FAERS Safety Report 25567579 (Version 1)
Quarter: 2025Q3

REPORT INFORMATION
  Report Type: Spontaneous
  Country: US (occurrence: US)
  Receive Date: 20250716
  Receipt Date: 20250716
  Transmission Date: 20251020
  Serious: No
  Sender: NOVO NORDISK
  Company Number: US-NOVOPROD-1264423

PATIENT
  Age: 68 Year

DRUGS (1)
  1. OZEMPIC [Suspect]
     Active Substance: SEMAGLUTIDE
     Indication: Type 2 diabetes mellitus
     Dosage: 2 MG, QW
     Route: 058
     Dates: start: 20240606

REACTIONS (3)
  - Headache [Unknown]
  - Abdominal discomfort [Unknown]
  - Off label use [Unknown]

NARRATIVE: CASE EVENT DATE: 20240607
